FAERS Safety Report 5182548-8 (Version None)
Quarter: 2006Q4

REPORT INFORMATION
  Report Type: 
  Country: None (occurrence: None)
  Receive Date: 20061220
  Receipt Date: 20061023
  Transmission Date: 20070319
  Serious: No
  Sender: FDA-Public Use
  Company Number: US-GLAXOSMITHKLINE-A0624479A

PATIENT
  Age: 86 Year
  Sex: Female

DRUGS (2)
  1. COMMIT [Suspect]
  2. ADVIL [Concomitant]

REACTIONS (10)
  - DRUG ADMINISTRATION ERROR [None]
  - DYSPEPSIA [None]
  - FEELING ABNORMAL [None]
  - FLATULENCE [None]
  - INSOMNIA [None]
  - INTENTIONAL DRUG MISUSE [None]
  - MALAISE [None]
  - NICOTINE DEPENDENCE [None]
  - PAIN IN EXTREMITY [None]
  - PHARMACEUTICAL PRODUCT COMPLAINT [None]
